FAERS Safety Report 7794340-6 (Version None)
Quarter: 2011Q4

REPORT INFORMATION
  Report Type: 
  Country: None (occurrence: None)
  Receive Date: 20111004
  Receipt Date: 20110930
  Transmission Date: 20120403
  Serious: Yes (Disabling, Other)
  Sender: FDA-Public Use
  Company Number: AU-PFIZER INC-2011029468

PATIENT
  Age: 35 Year
  Sex: Male

DRUGS (3)
  1. LYRICA [Suspect]
     Dosage: 75 MG AT NIGHT INTERMITTENTLY
  2. LYRICA [Suspect]
     Dosage: 150 MG, 1X/DAY
  3. LYRICA [Suspect]
     Indication: NEURALGIA
     Dosage: 75 MG, 2X/DAY
     Route: 048
     Dates: start: 20091116, end: 20101213

REACTIONS (4)
  - DEPRESSED MOOD [None]
  - MOOD ALTERED [None]
  - IRRITABILITY [None]
  - FEELING ABNORMAL [None]
